FAERS Safety Report 5262567-3 (Version None)
Quarter: 2007Q1

REPORT INFORMATION
  Report Type: 
  Country: None (occurrence: None)
  Receive Date: 20070312
  Receipt Date: 20070307
  Transmission Date: 20070707
  Serious: Yes (Other)
  Sender: FDA-Public Use
  Company Number: US-BRISTOL-MYERS SQUIBB COMPANY-13676283

PATIENT
  Age: 65 Year
  Sex: Female

DRUGS (1)
  1. MEGACE [Suspect]
     Dates: start: 19901001

REACTIONS (1)
  - BRAIN NEOPLASM BENIGN [None]
